FAERS Safety Report 20528794 (Version 1)
Quarter: 2022Q1

REPORT INFORMATION
  Report Type: Spontaneous
  Country: US (occurrence: US)
  Receive Date: 20220228
  Receipt Date: 20220228
  Transmission Date: 20220424
  Serious: Yes (Other)
  Sender: FDA-Public Use
  Company Number: US-NOVARTISPH-NVSC2022US047814

PATIENT
  Age: 59 Year
  Sex: Female

DRUGS (6)
  1. RANITIDINE [Suspect]
     Active Substance: RANITIDINE
     Dosage: 150 MG,300 MG  ,,DAILY,
     Route: 048
     Dates: start: 198301, end: 201901
  2. RANITIDINE [Suspect]
     Active Substance: RANITIDINE
     Indication: Gastrooesophageal reflux disease
  3. RANITIDINE [Suspect]
     Active Substance: RANITIDINE
     Indication: Impaired gastric emptying
  4. RANITIDINE [Suspect]
     Active Substance: RANITIDINE
     Dosage: 150 MG,300 MG  ,,DAILY,
     Route: 048
     Dates: start: 198301, end: 201901
  5. RANITIDINE [Suspect]
     Active Substance: RANITIDINE
     Indication: Gastrooesophageal reflux disease
  6. RANITIDINE [Suspect]
     Active Substance: RANITIDINE
     Indication: Impaired gastric emptying

REACTIONS (1)
  - Bladder cancer [Recovering/Resolving]

NARRATIVE: CASE EVENT DATE: 20120801
